FAERS Safety Report 7596750-9 (Version None)
Quarter: 2011Q3

REPORT INFORMATION
  Report Type: 
  Country: None (occurrence: None)
  Receive Date: 20110708
  Receipt Date: 20110705
  Transmission Date: 20111222
  Serious: No
  Sender: FDA-Public Use
  Company Number: US-PFIZER INC-2011150713

PATIENT
  Sex: Male
  Weight: 72.109 kg

DRUGS (1)
  1. ZITHROMAX [Suspect]
     Indication: CYSTIC FIBROSIS
     Dosage: 500 MG, 3X/WEEK
     Route: 048
     Dates: start: 20060201, end: 20060201

REACTIONS (3)
  - ABDOMINAL PAIN [None]
  - NAUSEA [None]
  - VOMITING [None]
